FAERS Safety Report 23271425 (Version 1)
Quarter: 2023Q4

REPORT INFORMATION
  Report Type: Spontaneous
  Country: NL (occurrence: NL)
  Receive Date: 20231207
  Receipt Date: 20231207
  Transmission Date: 20240109
  Serious: Yes (Hospitalization)
  Sender: FDA-Public Use
  Company Number: NL-BAYER-2023A175055

PATIENT

DRUGS (1)
  1. GADOBUTROL [Suspect]
     Active Substance: GADOBUTROL
     Dosage: 8-10 ML
     Route: 042

REACTIONS (5)
  - Rash macular [None]
  - Urticaria [None]
  - Pruritus [None]
  - Malaise [None]
  - Discomfort [None]
